FAERS Safety Report 20181871 (Version 1)
Quarter: 2021Q4

REPORT INFORMATION
  Report Type: Spontaneous
  Country: JP (occurrence: JP)
  Receive Date: 20211214
  Receipt Date: 20211214
  Transmission Date: 20220303
  Serious: Yes (Other)
  Sender: FDA-Public Use
  Company Number: JP-PFIZER INC-7510

PATIENT
  Age: 23 Year
  Sex: Male

DRUGS (6)
  1. CISPLATIN [Suspect]
     Active Substance: CISPLATIN
     Indication: Osteosarcoma
     Dosage: 100 MG/M2, CYCLIC
     Route: 013
  2. CISPLATIN [Suspect]
     Active Substance: CISPLATIN
     Dosage: 100 MG/M2, CYCLIC
     Route: 042
  3. DOXORUBICIN HYDROCHLORIDE [Suspect]
     Active Substance: DOXORUBICIN HYDROCHLORIDE
     Indication: Osteosarcoma
     Dosage: 90 MG/M2, CYCLIC
     Route: 013
  4. DOXORUBICIN HYDROCHLORIDE [Suspect]
     Active Substance: DOXORUBICIN HYDROCHLORIDE
     Dosage: 90 MG/M2, CYCLIC
     Route: 042
  5. METHOTREXATE SODIUM [Suspect]
     Active Substance: METHOTREXATE SODIUM
     Indication: Osteosarcoma
     Dosage: 10 G/M2, CYCLIC
  6. IFOSFAMIDE [Suspect]
     Active Substance: IFOSFAMIDE
     Indication: Osteosarcoma
     Dosage: 10 G/M2, CYCLIC

REACTIONS (2)
  - Synovial sarcoma [Recovered/Resolved]
  - Second primary malignancy [Recovered/Resolved]
